FAERS Safety Report 6081610-5 (Version None)
Quarter: 2009Q1

REPORT INFORMATION
  Report Type: 
  Country: None (occurrence: None)
  Receive Date: 20090218
  Receipt Date: 20090212
  Transmission Date: 20090719
  Serious: Yes (Hospitalization)
  Sender: FDA-Public Use
  Company Number: FR-BIOGENIDEC-2009BI004810

PATIENT
  Age: 67 Year
  Sex: Female

DRUGS (7)
  1. AVONEX [Suspect]
     Indication: MULTIPLE SCLEROSIS
     Route: 030
     Dates: start: 20010101, end: 20031001
  2. AVONEX [Suspect]
     Route: 030
     Dates: start: 20031001
  3. MICARDIS [Concomitant]
     Indication: HYPERTENSION
  4. HYPERIUM [Concomitant]
     Indication: HYPERTENSION
  5. ATENOLOL [Concomitant]
     Indication: HYPERTENSION
  6. ALDACTONE [Concomitant]
     Indication: HYPERTENSION
  7. AMLOR [Concomitant]
     Indication: HYPERTENSION

REACTIONS (1)
  - PYELONEPHRITIS [None]
